FAERS Safety Report 20764457 (Version 1)
Quarter: 2022Q2

REPORT INFORMATION
  Report Type: Spontaneous
  Country: BR (occurrence: BR)
  Receive Date: 20220428
  Receipt Date: 20220428
  Transmission Date: 20220721
  Serious: Yes (Other)
  Sender: FDA-Public Use
  Company Number: BR-009507513-2204BRA008738

PATIENT
  Age: 67 Year
  Sex: Male
  Weight: 61 kg

DRUGS (2)
  1. JANUMET [Suspect]
     Active Substance: METFORMIN HYDROCHLORIDE\SITAGLIPTIN PHOSPHATE
     Indication: Type 2 diabetes mellitus
     Dosage: 50/1000 MG, 1 DF IN THE MORNING AND 1 DF AT NIGHT
     Route: 048
     Dates: start: 2018
  2. IMIPRAMINE [Concomitant]
     Active Substance: IMIPRAMINE
     Dosage: 4 MILLIGRAM

REACTIONS (14)
  - Pancreatic carcinoma [Recovered/Resolved]
  - Small intestine carcinoma [Recovered/Resolved]
  - Gallbladder cancer [Recovered/Resolved]
  - Thyroid mass [Unknown]
  - Pulmonary mass [Unknown]
  - Calcinosis [Unknown]
  - Weight decreased [Unknown]
  - Asthenia [Unknown]
  - Diarrhoea [Unknown]
  - Blood glucose abnormal [Unknown]
  - Dysstasia [Unknown]
  - Gait inability [Unknown]
  - Confusional state [Unknown]
  - Weight fluctuation [Unknown]

NARRATIVE: CASE EVENT DATE: 20180801
